FAERS Safety Report 6389861-7 (Version None)
Quarter: 2009Q4

REPORT INFORMATION
  Report Type: 
  Country: None (occurrence: None)
  Receive Date: 20091006
  Receipt Date: 20081111
  Transmission Date: 20100525
  Serious: No
  Sender: FDA-Public Use
  Company Number: US-BRISTOL-MYERS SQUIBB COMPANY-14403026

PATIENT
  Age: 51 Year
  Sex: Male

DRUGS (3)
  1. AVAPRO [Suspect]
     Indication: HYPERTENSION
     Dates: start: 20080601
  2. TOPROL-XL [Concomitant]
  3. ZOCOR [Concomitant]

REACTIONS (1)
  - DYSGEUSIA [None]
